FAERS Safety Report 5490846-3 (Version None)
Quarter: 2007Q4

REPORT INFORMATION
  Report Type: 
  Country: None (occurrence: None)
  Receive Date: 20071019
  Receipt Date: 20071017
  Transmission Date: 20080405
  Serious: Yes (Death)
  Sender: FDA-Public Use
  Company Number: AT-MERCK-0710AUT00007

PATIENT
  Sex: Male

DRUGS (3)
  1. CANCIDAS [Suspect]
     Indication: CANDIDIASIS
     Route: 041
     Dates: start: 20071016, end: 20071016
  2. NOXAFIL [Concomitant]
     Route: 065
     Dates: end: 20071016
  3. AMPHOTERICIN B [Concomitant]
     Indication: CANDIDIASIS
     Route: 065
     Dates: start: 20071016, end: 20071016

REACTIONS (2)
  - CANDIDIASIS [None]
  - DEATH [None]
